FAERS Safety Report 6858238-X (Version None)
Quarter: 2010Q3

REPORT INFORMATION
  Report Type: 
  Country: None (occurrence: None)
  Receive Date: 20100719
  Receipt Date: 20080322
  Transmission Date: 20110219
  Serious: No
  Sender: FDA-Public Use
  Company Number: US-PFIZER INC-2008011669

PATIENT
  Sex: Female
  Weight: 55.8 kg

DRUGS (1)
  1. CHANTIX [Suspect]
     Indication: SMOKING CESSATION THERAPY
     Route: 048
     Dates: start: 20080114, end: 20080123

REACTIONS (5)
  - ANXIETY [None]
  - COLD SWEAT [None]
  - DEPRESSION [None]
  - PANIC DISORDER [None]
  - POOR QUALITY SLEEP [None]
